FAERS Safety Report 5451018-1 (Version None)
Quarter: 2007Q3

REPORT INFORMATION
  Report Type: 
  Country: None (occurrence: None)
  Receive Date: 20070801
  Receipt Date: 20060718
  Transmission Date: 20080115
  Serious: Yes (Other)
  Sender: FDA-Public Use
  Company Number: PHEH2006US09226

PATIENT
  Sex: Female

DRUGS (1)
  1. RITALIN LA [Suspect]

REACTIONS (7)
  - AGITATED DEPRESSION [None]
  - CONFUSIONAL STATE [None]
  - DEPRESSION [None]
  - DIZZINESS [None]
  - HALLUCINATION [None]
  - SOMNOLENCE [None]
  - SUICIDAL IDEATION [None]
